FAERS Safety Report 8480888-8 (Version None)
Quarter: 2012Q2

REPORT INFORMATION
  Report Type: 
  Country: None (occurrence: None)
  Receive Date: 20120625
  Receipt Date: 20120605
  Transmission Date: 20120825
  Serious: Yes (Other)
  Sender: FDA-Public Use
  Company Number: JP-2012-15441

PATIENT

DRUGS (1)
  1. SAMSCA [Suspect]
     Dosage: 7.5 MG MLLLIGRAM(S), DAILY DOSE, ORAL
     Route: 048

REACTIONS (1)
  - INTERSTITIAL LUNG DISEASE [None]
